FAERS Safety Report 4403911-6 (Version None)
Quarter: 2004Q3

REPORT INFORMATION
  Report Type: 
  Country: None (occurrence: None)
  Receive Date: 20040719
  Receipt Date: 20040712
  Transmission Date: 20050211
  Serious: Yes (Life-Threatening, Hospitalization, Other)
  Sender: FDA-Public Use
  Company Number: HQWYE980003OCT03

PATIENT
  Age: 66 Year
  Sex: Male

DRUGS (7)
  1. RAPAMUNE [Suspect]
     Indication: PROPHYLAXIS AGAINST TRANSPLANT REJECTION
     Dosage: 5 MG 1X PER 1 DAY
     Route: 048
     Dates: start: 20030305, end: 20031008
  2. INSULIN [Concomitant]
  3. SULFAMETHOXAZOLE + TRIMETHOPRIM [Concomitant]
  4. SIMVASTATIN [Concomitant]
  5. DIOVAN HCT [Concomitant]
  6. ATROPINA LUX (ATROPINE SULFATE) [Concomitant]
  7. OFT CUSI DE ICOL (CHLORAMPHENICOL / DEXAMETHASONE SODIUM PHOSPHATE) [Concomitant]

REACTIONS (3)
  - ANAEMIA [None]
  - ANGINA PECTORIS [None]
  - ELECTROCARDIOGRAM ST SEGMENT ELEVATION [None]
